FAERS Safety Report 26184857 (Version 1)
Quarter: 2025Q4

REPORT INFORMATION
  Report Type: Spontaneous
  Country: CO (occurrence: CO)
  Receive Date: 20251222
  Receipt Date: 20251222
  Transmission Date: 20260117
  Serious: Yes (Hospitalization, Other)
  Sender: RK PHARMA
  Company Number: CO-RK PHARMA, INC-20251200187

PATIENT
  Age: 71 Year
  Sex: Male

DRUGS (1)
  1. DICLOFENAC POTASSIUM [Suspect]
     Active Substance: DICLOFENAC POTASSIUM
     Route: 048

REACTIONS (2)
  - Kounis syndrome [Recovered/Resolved]
  - Accidental exposure to product [Recovered/Resolved]
